FAERS Safety Report 5273492-6 (Version None)
Quarter: 2007Q1

REPORT INFORMATION
  Report Type: 
  Country: None (occurrence: None)
  Receive Date: 20070321
  Receipt Date: 20070321
  Transmission Date: 20070707
  Serious: Yes (Other)
  Sender: FDA-Public Use
  Company Number: None

PATIENT
  Age: 10 Year
  Sex: Male
  Weight: 33.5662 kg

DRUGS (2)
  1. DAYTRANA [Suspect]
     Indication: ATTENTION DEFICIT/HYPERACTIVITY DISORDER
     Dosage: APPLY ONE PATCH TO HIP EVERY MORNING FOR ADHD
     Dates: start: 20070303
  2. DAYTRANA [Suspect]
     Indication: IMPULSIVE BEHAVIOUR
     Dosage: APPLY ONE PATCH TO HIP EVERY MORNING FOR ADHD
     Dates: start: 20070303

REACTIONS (3)
  - CIRCUMSTANCE OR INFORMATION CAPABLE OF LEADING TO MEDICATION ERROR [None]
  - DRUG EFFECT DECREASED [None]
  - MEDICAL DEVICE COMPLICATION [None]
